FAERS Safety Report 9378664 (Version 1)
Quarter: 2013Q2

REPORT INFORMATION
  Report Type: Spontaneous
  Country: FR (occurrence: None)
  Receive Date: 20130626
  Receipt Date: 20130626
  Transmission Date: 20140414
  Serious: Yes (Hospitalization)
  Sender: FDA-Public Use
  Company Number: DSM-2013-00583

PATIENT
  Age: 79 Year
  Sex: Female

DRUGS (3)
  1. AXELER [Suspect]
     Indication: HYPERTENSION
     Dosage: 40/5 MG
     Route: 048
  2. SEROPLEX [Suspect]
     Indication: DEPRESSION
     Dosage: (10 MG, 1 IN 1 D)
     Route: 048
     Dates: start: 20130430, end: 20130507
  3. FENOFIBRATE [Suspect]
     Indication: PRODUCT USED FOR UNKNOWN INDICATION
     Dosage: (67 MG, 1 IN 1 D)
     Route: 048

REACTIONS (3)
  - Hyponatraemia [None]
  - Confusional state [None]
  - Depression [None]
